FAERS Safety Report 11394021 (Version 1)
Quarter: 2015Q3

REPORT INFORMATION
  Report Type: Spontaneous
  Country: GB (occurrence: None)
  Receive Date: 20150817
  Receipt Date: 20150817
  Transmission Date: 20151125
  Serious: Yes (Death, Hospitalization, Other)
  Sender: FDA-Public Use
  Company Number: ADR-2015-01552

PATIENT
  Age: 39 Year
  Sex: Male

DRUGS (12)
  1. AMLODIPINE [Suspect]
     Active Substance: AMLODIPINE BESYLATE
     Dates: start: 20120705
  2. IBUPROFEN (IBUPROFEN) [Suspect]
     Active Substance: IBUPROFEN
     Dates: start: 20140109
  3. FLUCLOXACILLIN (FLUCLOXACILLIN) [Suspect]
     Active Substance: FLUCLOXACILLIN
     Dates: start: 20140223, end: 20140226
  4. BACLOFEN (BACLOFEN) [Suspect]
     Active Substance: BACLOFEN
     Dates: start: 20140131
  5. SERTRALINE [Suspect]
     Active Substance: SERTRALINE HYDROCHLORIDE
     Dates: start: 20140207
  6. ZOPICLONE (ZOPICLONE) [Suspect]
     Active Substance: ZOPICLONE
     Dates: start: 20130220
  7. LIORESAL [Suspect]
     Active Substance: BACLOFEN
     Indication: MUSCLE SPASTICITY
     Dates: start: 20140131
  8. PARACETAMOL (PARACETAMOL) [Suspect]
     Active Substance: ACETAMINOPHEN
     Dates: start: 20121112
  9. CO-DYDRAMOL [Suspect]
     Active Substance: ACETAMINOPHEN\DIHYDROCODEINE
     Dates: start: 20140109
  10. SILDENAFIL (SILDENAFIL) [Suspect]
     Active Substance: SILDENAFIL
     Dates: start: 20130220
  11. RAMIPRIL (RAMIPRIL) [Suspect]
     Active Substance: RAMIPRIL
     Dates: start: 20140113
  12. METOPROLOL (METOPROLOL) [Suspect]
     Active Substance: METOPROLOL
     Dates: start: 20120705

REACTIONS (1)
  - Decubitus ulcer [None]

NARRATIVE: CASE EVENT DATE: 20140224
